FAERS Safety Report 7154016-5 (Version None)
Quarter: 2010Q4

REPORT INFORMATION
  Report Type: 
  Country: None (occurrence: None)
  Receive Date: 20101213
  Receipt Date: 20101201
  Transmission Date: 20110411
  Serious: Yes (Other)
  Sender: FDA-Public Use
  Company Number: PHHY2010US40417

PATIENT
  Sex: Male

DRUGS (2)
  1. GLEEVEC [Suspect]
     Indication: CHRONIC MYELOID LEUKAEMIA
     Dosage: 100 MG DAILY
     Route: 048
     Dates: start: 20100219
  2. GLEEVEC [Suspect]
     Dosage: 1100 MG, IN DIVIDED DOSES
     Route: 048
     Dates: start: 20100219

REACTIONS (7)
  - ABDOMINAL PAIN [None]
  - CARDIAC FLUTTER [None]
  - FLUID RETENTION [None]
  - FLUSHING [None]
  - GASTROINTESTINAL MOTILITY DISORDER [None]
  - PRURITUS [None]
  - SWELLING [None]
